FAERS Safety Report 9298845 (Version 1)
Quarter: 2013Q2

REPORT INFORMATION
  Report Type: Spontaneous
  Country: IT (occurrence: IT)
  Receive Date: 20130520
  Receipt Date: 20130520
  Transmission Date: 20140414
  Serious: Yes (Other)
  Sender: FDA-Public Use
  Company Number: IT-TEVA-404109ISR

PATIENT
  Age: 52 Year
  Sex: Female
  Weight: 60 kg

DRUGS (5)
  1. CARBOPLATINO TEVA [Suspect]
     Indication: ENDOMETRIAL CANCER
     Dosage: 471.2MG, CYCLICAL
     Route: 042
     Dates: start: 20130212, end: 20130212
  2. PACLITAXEL TEVA [Suspect]
     Indication: ENDOMETRIAL CANCER
     Dosage: 281.8, CYCLICAL
     Route: 042
     Dates: start: 20130212, end: 20130212
  3. ONDANSETRONE HIKMA [Concomitant]
     Indication: ENDOMETRIAL CANCER
     Route: 042
     Dates: start: 20130212, end: 20130212
  4. SOLDESAM [Concomitant]
     Indication: ENDOMETRIAL CANCER
     Dosage: 8 MILLIGRAM DAILY;
     Route: 042
  5. RANIDIL [Concomitant]
     Dosage: 100 MILLIGRAM DAILY;

REACTIONS (6)
  - Neuralgia [Recovering/Resolving]
  - Tracheitis [Recovering/Resolving]
  - Stomatitis [Recovering/Resolving]
  - Constipation [Recovering/Resolving]
  - Rash [Recovering/Resolving]
  - Pain of skin [Recovering/Resolving]
